FAERS Safety Report 8480363-0 (Version None)
Quarter: 2012Q3

REPORT INFORMATION
  Report Type: 
  Country: None (occurrence: None)
  Receive Date: 20120702
  Receipt Date: 20120616
  Transmission Date: 20120928
  Serious: Yes (Hospitalization)
  Sender: FDA-Public Use
  Company Number: CN-ACCORD-013752

PATIENT
  Age: 13 Year
  Sex: Female

DRUGS (3)
  1. OLANZAPINE [Suspect]
  2. TRIHEXYPHENIDYL HCL [Suspect]
     Indication: RESTLESSNESS
     Dosage: STARTED WITH UNKNOWN DOSE AND GRADUALLY INCREASED TO 5 MG/DAY
  3. TOPIRAMATE [Suspect]

REACTIONS (3)
  - HALLUCINATION [None]
  - RENAL TUBULAR ACIDOSIS [None]
  - OFF LABEL USE [None]
